FAERS Safety Report 5425478-6 (Version None)
Quarter: 2007Q3

REPORT INFORMATION
  Report Type: 
  Country: None (occurrence: None)
  Receive Date: 20070824
  Receipt Date: 20070816
  Transmission Date: 20080115
  Serious: Yes (Hospitalization, Other)
  Sender: FDA-Public Use
  Company Number: US-AMGEN-US235538

PATIENT
  Sex: Male

DRUGS (6)
  1. PROCRIT [Suspect]
     Indication: ANAEMIA OF MALIGNANT DISEASE
     Route: 058
     Dates: start: 20070212, end: 20070707
  2. ARANESP [Suspect]
     Indication: ANAEMIA OF MALIGNANT DISEASE
     Dates: start: 20061005, end: 20070118
  3. CORTICOSTEROID NOS [Concomitant]
     Dates: start: 20070701
  4. ALLOPURINOL [Concomitant]
  5. SULFAMETHOXAZOLE [Concomitant]
  6. SULFAMETHOXAZOLE + TRIMETHOPRIM [Concomitant]

REACTIONS (5)
  - BONE MARROW FAILURE [None]
  - CELLULITIS [None]
  - HOSPITALISATION [None]
  - THERAPEUTIC RESPONSE DECREASED [None]
  - VITAMIN B12 DEFICIENCY [None]
